FAERS Safety Report 5472939-X (Version None)
Quarter: 2007Q4

REPORT INFORMATION
  Report Type: 
  Country: None (occurrence: None)
  Receive Date: 20071001
  Receipt Date: 20061208
  Transmission Date: 20080405
  Serious: No
  Sender: FDA-Public Use
  Company Number: US-ASTRAZENECA-2006UW27323

PATIENT
  Sex: Female

DRUGS (3)
  1. ARIMIDEX [Suspect]
     Indication: BREAST CANCER
     Route: 048
     Dates: start: 20040101, end: 20060101
  2. NOLVADEX [Concomitant]
     Indication: BREAST CANCER
     Dosage: SWITCHED BACK TO NOLVADEX (AFTER TAKING ARIMIDEX FOR 18 MONTHS)
     Route: 048
     Dates: start: 20060101
  3. NOLVADEX [Concomitant]
     Dosage: SWITCHED TO ARIMIDEX
     Route: 048
     Dates: start: 20020101, end: 20040101

REACTIONS (3)
  - ILL-DEFINED DISORDER [None]
  - MUSCULOSKELETAL DISORDER [None]
  - NEURALGIA [None]
